FAERS Safety Report 6313157-2 (Version None)
Quarter: 2009Q3

REPORT INFORMATION
  Report Type: 
  Country: None (occurrence: None)
  Receive Date: 20090818
  Receipt Date: 20090811
  Transmission Date: 20100115
  Serious: Yes (Death, Hospitalization)
  Sender: FDA-Public Use
  Company Number: AU-CELGENEUS-008-21880-09062240

PATIENT
  Sex: Female

DRUGS (3)
  1. REVLIMID [Suspect]
     Indication: MULTIPLE MYELOMA
     Route: 048
     Dates: start: 20081003
  2. REVLIMID [Suspect]
     Route: 048
     Dates: end: 20090728
  3. DEXAMETHASONE [Concomitant]
     Indication: MULTIPLE MYELOMA
     Route: 065
     Dates: end: 20090728

REACTIONS (4)
  - DEATH [None]
  - MALAISE [None]
  - MULTIPLE MYELOMA [None]
  - PANCYTOPENIA [None]
